FAERS Safety Report 5235493-3 (Version None)
Quarter: 2007Q1

REPORT INFORMATION
  Report Type: 
  Country: None (occurrence: None)
  Receive Date: 20070207
  Receipt Date: 20070207
  Transmission Date: 20070707
  Serious: No
  Sender: FDA-Public Use
  Company Number: None

PATIENT
  Sex: Male
  Weight: 140.6151 kg

DRUGS (2)
  1. METFORMIN HCL [Suspect]
     Indication: DIABETES MELLITUS
     Dosage: 1 TAB  BID  PO
     Route: 048
     Dates: start: 20061220, end: 20070122
  2. GLUCOPHAGE [Suspect]

REACTIONS (3)
  - CHEST PAIN [None]
  - DRUG ERUPTION [None]
  - PHARMACEUTICAL PRODUCT COMPLAINT [None]
